FAERS Safety Report 10057851 (Version 1)
Quarter: 2014Q1

REPORT INFORMATION
  Report Type: Spontaneous
  Country: US (occurrence: None)
  Receive Date: 20140326
  Receipt Date: 20140326
  Transmission Date: 20141002
  Serious: Yes (Hospitalization)
  Sender: FDA-Public Use
  Company Number: 2014US002100

PATIENT
  Age: 39 Year
  Sex: Male

DRUGS (1)
  1. GLASSIA [Suspect]
     Indication: PRODUCT USED FOR UNKNOWN INDICATION
     Route: 042
     Dates: start: 20140201

REACTIONS (3)
  - Pruritus [None]
  - Rash [None]
  - Sleep disorder [None]
